FAERS Safety Report 8664493 (Version 2)
Quarter: 2013Q3

REPORT INFORMATION
  Report Type: Report from Study
  Country: UG (occurrence: UG)
  Receive Date: 20120713
  Receipt Date: 20130716
  Transmission Date: 20140515
  Serious: Yes (Hospitalization, Other)
  Sender: FDA-Public Use
  Company Number: UG-GILEAD-2012-0055792

PATIENT
  Age: 24 Year
  Sex: Female

DRUGS (8)
  1. EMTRICITABINE/TENOFOVIR DISOPROXIL FUMARATE [Suspect]
     Indication: PROPHYLAXIS AGAINST HIV INFECTION
     Dosage: UNK
     Dates: start: 20100505, end: 20111214
  2. EMTRICITABINE/TENOFOVIR DISOPROXIL FUMARATE [Suspect]
     Dosage: UNK
     Dates: start: 201205
  3. MEDROXYPROGESTERONE [Concomitant]
     Dosage: UNK
     Dates: start: 20111116
  4. FERROUS FUMARATE W/FOLIC ACID [Concomitant]
  5. PARACETAMOL [Concomitant]
     Dosage: UNK
     Dates: start: 20120111, end: 20120113
  6. ERYTHROMYCIN [Concomitant]
     Dosage: UNK
     Dates: start: 20120305, end: 20120311
  7. METRONIDAZOLE [Concomitant]
     Dosage: UNK
     Dates: start: 20120307, end: 20120311
  8. CEFTRIAXONE [Concomitant]
     Dosage: UNK
     Dates: start: 20120307

REACTIONS (2)
  - Abortion spontaneous [Recovered/Resolved]
  - Infection [Unknown]
